FAERS Safety Report 4981274-5 (Version None)
Quarter: 2006Q1

REPORT INFORMATION
  Report Type: 
  Country: None (occurrence: None)
  Receive Date: 20060317
  Receipt Date: 20060331
  Transmission Date: 20060701
  Serious: Yes (Hospitalization)
  Sender: FDA-Public Use
  Company Number: THYM-10916

PATIENT
  Age: 59 Year
  Sex: Male
  Weight: 120.4 kg

DRUGS (8)
  1. THYMOGLOBULIN [Suspect]
     Indication: IMMUNOSUPPRESSION
     Dosage: 1.5 MG/KG UNK IV
     Route: 042
     Dates: start: 20050603, end: 20050615
  2. THYMOGLOBULIN [Suspect]
     Indication: RENAL TRANSPLANT
     Dosage: 1.5 MG/KG UNK IV
     Route: 042
     Dates: start: 20050603, end: 20050615
  3. PREDNISONE TAB [Concomitant]
  4. CELLCEPT [Concomitant]
  5. HYDRALAZINE [Concomitant]
  6. LOPRESSOR [Concomitant]
  7. INSULIN [Concomitant]
  8. BACTRIM [Concomitant]

REACTIONS (1)
  - NO ADVERSE DRUG EFFECT [None]
